FAERS Safety Report 8515546-4 (Version None)
Quarter: 2012Q3

REPORT INFORMATION
  Report Type: 
  Country: None (occurrence: None)
  Receive Date: 20120717
  Receipt Date: 20120706
  Transmission Date: 20120928
  Serious: Yes (Other)
  Sender: FDA-Public Use
  Company Number: US-JNJFOC-20120509778

PATIENT
  Sex: Female
  Weight: 73.48 kg

DRUGS (9)
  1. LOVASTATIN [Concomitant]
     Indication: HYPERLIPIDAEMIA
     Dosage: 40M
     Route: 048
     Dates: start: 20000101
  2. FLUOXETINE HCL [Concomitant]
     Indication: DEPRESSION
     Dosage: 10M
     Route: 065
     Dates: start: 20120101
  3. ASPIRIN [Concomitant]
     Indication: ANTICOAGULANT THERAPY
     Route: 048
  4. STELARA [Suspect]
     Indication: PSORIASIS
     Route: 058
     Dates: start: 20120101
  5. STELARA [Suspect]
     Route: 058
     Dates: start: 20111101
  6. BENICAR [Concomitant]
     Indication: BLOOD PRESSURE
     Dosage: 40/225 MG
     Route: 048
     Dates: start: 19980101
  7. VITAMIN D [Concomitant]
     Indication: VITAMIN D DEFICIENCY
     Dosage: 50000 UNITS
     Route: 048
     Dates: start: 20110101
  8. ASPIRIN [Concomitant]
     Indication: CARDIOVASCULAR DISORDER
     Route: 048
  9. TACLONEX [Concomitant]
     Indication: PSORIASIS
     Route: 065

REACTIONS (4)
  - SQUAMOUS CELL CARCINOMA [None]
  - PSORIASIS [None]
  - ACTINIC KERATOSIS [None]
  - SEBORRHOEIC KERATOSIS [None]
